FAERS Safety Report 9800671 (Version 2)
Quarter: 2014Q2

REPORT INFORMATION
  Report Type: Report from Study
  Country: US (occurrence: US)
  Receive Date: 20140107
  Receipt Date: 20140408
  Transmission Date: 20141212
  Serious: Yes (Other)
  Sender: FDA-Public Use
  Company Number: US-ROCHE-1313486

PATIENT
  Age: 53 Year
  Sex: Male

DRUGS (5)
  1. LUCENTIS [Suspect]
     Indication: PRODUCT USED FOR UNKNOWN INDICATION
     Route: 050
  2. DIOVAN [Concomitant]
  3. LOSARTAN [Concomitant]
  4. VIGAMOX [Concomitant]
  5. OFLOXACIN [Concomitant]

REACTIONS (8)
  - Vitreous floaters [Unknown]
  - Choroidal neovascularisation [Unknown]
  - Eyelid margin crusting [Unknown]
  - Blepharochalasis [Unknown]
  - Conjunctival deposit [Unknown]
  - Cataract nuclear [Unknown]
  - Cutis laxa [Unknown]
  - Hypertension [Unknown]
